FAERS Safety Report 5921480-6 (Version None)
Quarter: 2008Q4

REPORT INFORMATION
  Report Type: 
  Country: None (occurrence: None)
  Receive Date: 20081016
  Receipt Date: 20081016
  Transmission Date: 20090506
  Serious: Yes (Other)
  Sender: FDA-Public Use
  Company Number: None

PATIENT
  Age: 76 Year
  Sex: Male
  Weight: 75 kg

DRUGS (1)
  1. INVEGA [Suspect]
     Indication: BIPOLAR I DISORDER
     Dosage: 1 DAILY
     Dates: start: 20080828, end: 20080910

REACTIONS (10)
  - CONFUSIONAL STATE [None]
  - DIALYSIS [None]
  - DIZZINESS [None]
  - DRUG HYPERSENSITIVITY [None]
  - DYSPNOEA [None]
  - FLUID RETENTION [None]
  - HYPERHIDROSIS [None]
  - PYREXIA [None]
  - SKIN LACERATION [None]
  - WEIGHT INCREASED [None]
